FAERS Safety Report 10544874 (Version 1)
Quarter: 2014Q4

REPORT INFORMATION
  Report Type: Spontaneous
  Country: US (occurrence: US)
  Receive Date: 20141027
  Receipt Date: 20141027
  Transmission Date: 20150529
  Serious: Yes (Other)
  Sender: FDA-Public Use
  Company Number: US-BAYER-2014-154474

PATIENT
  Age: 14 Year
  Sex: Female

DRUGS (1)
  1. MIRENA [Suspect]
     Active Substance: LEVONORGESTREL
     Indication: MENORRHAGIA
     Dosage: DAILY DOSE 20 ?G
     Route: 015
     Dates: start: 2014

REACTIONS (13)
  - Asthenia [None]
  - Menstruation irregular [None]
  - Drug ineffective for unapproved indication [None]
  - Nausea [None]
  - Fatigue [None]
  - General physical health deterioration [None]
  - Headache [None]
  - Product use issue [None]
  - Vomiting [Recovered/Resolved]
  - Hypersomnia [None]
  - Abdominal pain [Not Recovered/Not Resolved]
  - Myalgia [Recovered/Resolved]
  - Vomiting [Not Recovered/Not Resolved]

NARRATIVE: CASE EVENT DATE: 2014
